FAERS Safety Report 10028381 (Version 1)
Quarter: 2014Q1

REPORT INFORMATION
  Report Type: Spontaneous
  Country: JP (occurrence: JP)
  Receive Date: 20140321
  Receipt Date: 20140321
  Transmission Date: 20141002
  Serious: Yes (Life-Threatening, Hospitalization)
  Sender: FDA-Public Use
  Company Number: JP-PFIZER INC-2014075522

PATIENT
  Age: 84 Year
  Sex: Female

DRUGS (2)
  1. ATENOLOL [Suspect]
     Dosage: 25 MG, DAILY
     Route: 048
  2. GARENOXACIN MESILATE [Interacting]
     Indication: NASOPHARYNGITIS
     Dosage: 1600 MG, UNK
     Route: 048

REACTIONS (4)
  - Bradycardia [Recovered/Resolved]
  - Cardio-respiratory arrest [Recovered/Resolved]
  - Renal failure acute [Recovered/Resolved]
  - Drug interaction [Recovered/Resolved]
